FAERS Safety Report 9304875 (Version 3)
Quarter: 2013Q4

REPORT INFORMATION
  Report Type: Spontaneous
  Country: US (occurrence: US)
  Receive Date: 20130523
  Receipt Date: 20131029
  Transmission Date: 20140711
  Serious: Yes (Hospitalization)
  Sender: FDA-Public Use
  Company Number: US-009507513-1305USA011898

PATIENT
  Age: 45 Year
  Sex: Female
  Weight: 121 kg

DRUGS (9)
  1. VICTRELIS [Suspect]
     Indication: HEPATITIS C
     Dosage: 4 CAPSULES (800 MG), TID
     Route: 048
     Dates: start: 20130318
  2. PEGASYS [Suspect]
     Dosage: STRENGTH: 180MCG/M
  3. REBETOL [Suspect]
     Route: 048
  4. NEUPOGEN [Suspect]
  5. XANAX [Concomitant]
     Route: 048
  6. GABAPENTIN [Concomitant]
     Route: 048
  7. WELLBUTRIN [Concomitant]
     Route: 048
  8. CYANOCOBALAMIN [Concomitant]
     Dosage: STRENGTH: 1000CR, QW
  9. OXYCODONE HYDROCHLORIDE [Concomitant]

REACTIONS (12)
  - Nephrolithiasis [Unknown]
  - Dysuria [Unknown]
  - White blood cell count decreased [Unknown]
  - Mood altered [Unknown]
  - Crying [Unknown]
  - Alopecia [Unknown]
  - Anger [Unknown]
  - Nausea [Unknown]
  - Vomiting [Unknown]
  - Headache [Unknown]
  - Diarrhoea [Unknown]
  - Hyperhidrosis [Unknown]
